FAERS Safety Report 9233849 (Version 2)
Quarter: 2013Q2

REPORT INFORMATION
  Report Type: Spontaneous
  Country: US (occurrence: US)
  Receive Date: 20130416
  Receipt Date: 20130501
  Transmission Date: 20140414
  Serious: Yes (Life-Threatening, Congenital Anomaly, Other)
  Sender: FDA-Public Use
  Company Number: US-PFIZER INC-2013119163

PATIENT
  Sex: Female

DRUGS (3)
  1. ZOLOFT [Suspect]
     Dosage: UNK
     Route: 064
     Dates: start: 1997, end: 2012
  2. PRENATAL VITAMINS [Concomitant]
     Dosage: UNK
     Route: 064
  3. ALLEGRA [Concomitant]
     Dosage: UNK, AS NEEDED
     Route: 064

REACTIONS (5)
  - Foetal exposure during pregnancy [Unknown]
  - Heart disease congenital [Unknown]
  - Atrial septal defect [Unknown]
  - Cardiomegaly [Unknown]
  - Premature baby [Unknown]
